FAERS Safety Report 14094970 (Version 3)
Quarter: 2018Q1

REPORT INFORMATION
  Report Type: Spontaneous
  Country: FR (occurrence: FR)
  Receive Date: 20171016
  Receipt Date: 20180117
  Transmission Date: 20180508
  Serious: Yes (Hospitalization, Other)
  Sender: FDA-Public Use
  Company Number: FR-BAXTER-2017BAX035209

PATIENT
  Age: 70 Year
  Sex: Male
  Weight: 60.2 kg

DRUGS (24)
  1. BACTRIM [Suspect]
     Active Substance: SULFAMETHOXAZOLE\TRIMETHOPRIM
     Indication: ANTIVIRAL PROPHYLAXIS
     Route: 048
     Dates: start: 20170428, end: 20170807
  2. CORTANCYL [Suspect]
     Active Substance: PREDNISONE
     Indication: ANTI-NEUTROPHIL CYTOPLASMIC ANTIBODY POSITIVE VASCULITIS
     Route: 065
     Dates: start: 201704
  3. IMOVANE [Concomitant]
     Active Substance: ZOPICLONE
     Indication: PRODUCT USED FOR UNKNOWN INDICATION
     Route: 065
  4. ENDOXAN 500 MG, POUDRE POUR SOLUTIONINJECTABLE [Suspect]
     Active Substance: CYCLOPHOSPHAMIDE
     Dosage: FIFTH CYCLE, LYOPHILISAT POUR SOLUTION INJECTABLE
     Route: 042
     Dates: start: 20170717, end: 2017
  5. DIPROSONE [Suspect]
     Active Substance: BETAMETHASONE DIPROPIONATE
     Indication: PRURITUS
     Dosage: AS NEEDED
     Route: 065
     Dates: start: 20170807
  6. COUMADINE [Suspect]
     Active Substance: WARFARIN SODIUM
     Dosage: DOSE REINTRODUCED
     Route: 048
     Dates: start: 20170828
  7. CORTANCYL [Suspect]
     Active Substance: PREDNISONE
     Indication: PULMONARY VASCULITIS
     Dosage: PROGRESSIVE DECREASE OF THE DOSE
     Route: 065
     Dates: start: 20170812
  8. KAYEXALATE [Concomitant]
     Active Substance: SODIUM POLYSTYRENE SULFONATE
     Indication: PRODUCT USED FOR UNKNOWN INDICATION
     Route: 065
  9. ENDOXAN 500 MG, POUDRE POUR SOLUTIONINJECTABLE [Suspect]
     Active Substance: CYCLOPHOSPHAMIDE
     Dosage: FOURTH CYCLE, LYOPHILISAT POUR SOLUTION INJECTABLE
     Route: 042
     Dates: start: 20170627, end: 2017
  10. CALCIUM CARBONATE. [Concomitant]
     Active Substance: CALCIUM CARBONATE
     Indication: PRODUCT USED FOR UNKNOWN INDICATION
     Route: 065
     Dates: end: 20170812
  11. SPECIAFOLDINE [Concomitant]
     Active Substance: FOLIC ACID
     Indication: PRODUCT USED FOR UNKNOWN INDICATION
     Route: 065
     Dates: end: 20170812
  12. ENDOXAN 500 MG, POUDRE POUR SOLUTIONINJECTABLE [Suspect]
     Active Substance: CYCLOPHOSPHAMIDE
     Indication: RENAL VASCULITIS
     Dosage: THIRD CYCLE, LYOPHILISAT POUR SOLUTION INJECTABLE
     Route: 042
     Dates: start: 20170528, end: 2017
  13. COUMADINE [Suspect]
     Active Substance: WARFARIN SODIUM
     Indication: PULMONARY EMBOLISM
     Dosage: 4MG ON DAY1 ALTERNATED WITH 5MG ON DAY2.
     Route: 048
     Dates: start: 20170518, end: 20170815
  14. ATARAX [Suspect]
     Active Substance: HYDROXYZINE HYDROCHLORIDE
     Indication: PRURITUS
     Dosage: AS NEEDED
     Route: 065
     Dates: start: 20170807
  15. ENDOXAN 500 MG, POUDRE POUR SOLUTIONINJECTABLE [Suspect]
     Active Substance: CYCLOPHOSPHAMIDE
     Indication: ANTI-NEUTROPHIL CYTOPLASMIC ANTIBODY POSITIVE VASCULITIS
     Dosage: FIRST CYCLE, LYOPHILISAT POUR SOLUTION INJECTABLE
     Route: 042
     Dates: start: 20170430, end: 201705
  16. ENDOXAN 500 MG, POUDRE POUR SOLUTIONINJECTABLE [Suspect]
     Active Substance: CYCLOPHOSPHAMIDE
     Indication: PULMONARY VASCULITIS
     Dosage: SECOND CYCLE, LYOPHILISAT POUR SOLUTION INJECTABLE
     Route: 042
     Dates: start: 20170515, end: 201705
  17. INEXIUM [Suspect]
     Active Substance: ESOMEPRAZOLE
     Indication: PROPHYLAXIS
     Route: 048
     Dates: start: 20170423, end: 20170812
  18. SOLU-MEDROL [Suspect]
     Active Substance: METHYLPREDNISOLONE SODIUM SUCCINATE
     Indication: ANTI-NEUTROPHIL CYTOPLASMIC ANTIBODY POSITIVE VASCULITIS
     Route: 040
     Dates: start: 201704
  19. ZYMAD [Concomitant]
     Active Substance: CHOLECALCIFEROL
     Indication: PRODUCT USED FOR UNKNOWN INDICATION
     Route: 065
  20. GALVUS [Suspect]
     Active Substance: VILDAGLIPTIN
     Indication: TYPE 2 DIABETES MELLITUS
     Route: 048
     Dates: start: 20170501, end: 20170812
  21. SOLU-MEDROL [Suspect]
     Active Substance: METHYLPREDNISOLONE SODIUM SUCCINATE
     Indication: PULMONARY VASCULITIS
  22. SOLU-MEDROL [Suspect]
     Active Substance: METHYLPREDNISOLONE SODIUM SUCCINATE
     Indication: RENAL VASCULITIS
  23. CORTANCYL [Suspect]
     Active Substance: PREDNISONE
     Indication: RENAL VASCULITIS
  24. VITAMIN B12 [Concomitant]
     Active Substance: CYANOCOBALAMIN
     Indication: PRODUCT USED FOR UNKNOWN INDICATION
     Route: 065
     Dates: end: 20170812

REACTIONS (10)
  - Pyrexia [Unknown]
  - Eosinophilia [Recovered/Resolved]
  - Eczema [Recovering/Resolving]
  - Rash erythematous [Recovered/Resolved]
  - Rash maculo-papular [Recovered/Resolved]
  - Pruritus [Recovered/Resolved]
  - Face oedema [Unknown]
  - Pharyngeal enanthema [Unknown]
  - Pulmonary embolism [Unknown]
  - Asthenia [Unknown]

NARRATIVE: CASE EVENT DATE: 201705
